FAERS Safety Report 16303725 (Version 1)
Quarter: 2019Q2

REPORT INFORMATION
  Report Type: Spontaneous
  Country: JP (occurrence: JP)
  Receive Date: 20190513
  Receipt Date: 20190513
  Transmission Date: 20190711
  Serious: Yes (Other)
  Sender: FDA-Public Use
  Company Number: JP-GLAXOSMITHKLINE-JP2019JPN081302

PATIENT
  Age: 83 Year
  Sex: Male

DRUGS (1)
  1. VALTREX [Suspect]
     Active Substance: VALACYCLOVIR HYDROCHLORIDE
     Indication: HERPES OPHTHALMIC
     Dosage: 1000 MG, TID
     Route: 048
     Dates: start: 201904

REACTIONS (4)
  - Incorrect product administration duration [Unknown]
  - Prescribed overdose [Unknown]
  - Herpes ophthalmic [Unknown]
  - Product use issue [Unknown]

NARRATIVE: CASE EVENT DATE: 2019
